FAERS Safety Report 25153694 (Version 4)
Quarter: 2025Q2

REPORT INFORMATION
  Report Type: Report from Study
  Country: JP (occurrence: JP)
  Receive Date: 20250403
  Receipt Date: 20250609
  Transmission Date: 20250716
  Serious: Yes (Other)
  Sender: GILEAD
  Company Number: JP-JNJFOC-20200339395

PATIENT
  Age: 35 Year
  Sex: Male

DRUGS (19)
  1. EMTRICITABINE\RILPIVIRINE HYDROCHLORIDE\TENOFOVIR ALAFENAMIDE FUMARATE [Suspect]
     Active Substance: EMTRICITABINE\RILPIVIRINE HYDROCHLORIDE\TENOFOVIR ALAFENAMIDE FUMARATE
     Indication: HIV infection
     Dosage: 1 DOSAGE FORM, QD
     Route: 048
     Dates: start: 20181016, end: 20240610
  2. FLUTICASONE FUROATE [Concomitant]
     Active Substance: FLUTICASONE FUROATE
     Indication: Product used for unknown indication
     Route: 045
     Dates: start: 20150216, end: 20150503
  3. FLUTICASONE FUROATE [Concomitant]
     Active Substance: FLUTICASONE FUROATE
     Route: 045
     Dates: start: 20160217, end: 20160518
  4. FLUTICASONE FUROATE [Concomitant]
     Active Substance: FLUTICASONE FUROATE
     Route: 045
     Dates: start: 20170307, end: 20170506
  5. FLUTICASONE FUROATE [Concomitant]
     Active Substance: FLUTICASONE FUROATE
     Route: 045
     Dates: start: 20180109, end: 20180607
  6. FLUTICASONE FUROATE [Concomitant]
     Active Substance: FLUTICASONE FUROATE
     Route: 045
     Dates: start: 20190416, end: 20190715
  7. FLUTICASONE FUROATE [Concomitant]
     Active Substance: FLUTICASONE FUROATE
     Route: 045
     Dates: start: 20240305, end: 20240811
  8. SYMBICORT [Concomitant]
     Active Substance: BUDESONIDE\FORMOTEROL FUMARATE DIHYDRATE
     Indication: Asthma
     Route: 055
     Dates: start: 20150304
  9. ALESION [Concomitant]
     Active Substance: EPINASTINE HYDROCHLORIDE
     Indication: Product used for unknown indication
     Route: 050
     Dates: start: 20150304, end: 20150503
  10. ALESION [Concomitant]
     Active Substance: EPINASTINE HYDROCHLORIDE
     Route: 050
     Dates: start: 20160217, end: 20160518
  11. ALESION [Concomitant]
     Active Substance: EPINASTINE HYDROCHLORIDE
     Route: 050
     Dates: start: 20170307, end: 20170506
  12. ALESION [Concomitant]
     Active Substance: EPINASTINE HYDROCHLORIDE
     Route: 050
     Dates: start: 20180109, end: 20180607
  13. ALESION [Concomitant]
     Active Substance: EPINASTINE HYDROCHLORIDE
     Route: 050
     Dates: start: 20190416, end: 20190715
  14. SINGULAIR [Concomitant]
     Active Substance: MONTELUKAST SODIUM
     Indication: Asthma
     Route: 048
     Dates: start: 20150706, end: 20231204
  15. MUCOSAL-L [Concomitant]
     Indication: Asthma
     Route: 048
     Dates: start: 20150706, end: 20231204
  16. PROCATEROL HYDROCHLORIDE [Concomitant]
     Active Substance: PROCATEROL HYDROCHLORIDE
     Indication: Asthma
     Route: 055
     Dates: start: 20180307, end: 20231204
  17. XYZAL [Concomitant]
     Active Substance: LEVOCETIRIZINE DIHYDROCHLORIDE
     Indication: Rhinitis allergic
     Route: 048
     Dates: start: 20180109, end: 20220314
  18. ROSUVASTATIN [Concomitant]
     Active Substance: ROSUVASTATIN
     Indication: Low density lipoprotein increased
     Route: 048
     Dates: start: 20200204
  19. RUPAFIN [Concomitant]
     Active Substance: RUPATADINE FUMARATE
     Indication: Product used for unknown indication
     Route: 048
     Dates: start: 20220315, end: 20231204

REACTIONS (4)
  - Hypertension [Not Recovered/Not Resolved]
  - Acne [Recovering/Resolving]
  - Migraine [Recovering/Resolving]
  - Stomatitis [Recovering/Resolving]

NARRATIVE: CASE EVENT DATE: 20181204
